FAERS Safety Report 8900990 (Version 1)
Quarter: 2012Q4

REPORT INFORMATION
  Report Type: 
  Country: ZA (occurrence: ZA)
  Receive Date: 20121109
  Receipt Date: 20121109
  Transmission Date: 20130627
  Serious: Yes (Hospitalization)
  Sender: FDA-Public Use
  Company Number: ZA-ELI_LILLY_AND_COMPANY-ZA201211001143

PATIENT
  Sex: Female
  Weight: 129 kg

DRUGS (7)
  1. HUMALOG LISPRO [Suspect]
     Indication: DIABETES MELLITUS
     Dosage: 10 u, tid
     Route: 058
  2. HUMULIN NPH [Suspect]
     Indication: DIABETES MELLITUS
     Dosage: 20 u, each evening
     Route: 058
  3. SERDEP                             /00724402/ [Concomitant]
     Indication: DEPRESSION
     Dosage: 150 mg, qd
     Route: 048
     Dates: start: 20120924
  4. MOLIPAXIN [Concomitant]
     Indication: DEPRESSION
     Dosage: 1 DF, qd
     Route: 048
     Dates: start: 20120924
  5. FERRIMED [Concomitant]
     Indication: IRON DEFICIENCY
     Dosage: 2 DF, qd
  6. SPIRACTIN                          /00006201/ [Concomitant]
     Indication: DIURETIC THERAPY
     Dosage: 2 DF, qd
     Route: 048
  7. METHOTREXATE [Concomitant]
     Indication: PSORIATIC ARTHROPATHY
     Dosage: UNK UNK, qd
     Route: 048

REACTIONS (1)
  - Depression [Unknown]
